FAERS Safety Report 11834052 (Version 4)
Quarter: 2016Q1

REPORT INFORMATION
  Report Type: Report from Study
  Country: JP (occurrence: JP)
  Receive Date: 20151214
  Receipt Date: 20160219
  Transmission Date: 20160525
  Serious: Yes (Other)
  Sender: FDA-Public Use
  Company Number: JP-NAPPMUNDI-GBR-2015-0032731

PATIENT
  Age: 74 Year
  Sex: Male

DRUGS (8)
  1. BTDS 5 MG [Suspect]
     Active Substance: BUPRENORPHINE
     Dosage: 10 MCG, Q1H
     Route: 062
     Dates: start: 20140414, end: 20140730
  2. BTDS 5 MG [Suspect]
     Active Substance: BUPRENORPHINE
     Dosage: 5 MCG, Q1H
     Route: 062
     Dates: start: 20141216, end: 20150307
  3. ARTZ [Concomitant]
     Active Substance: HYALURONATE SODIUM
     Dosage: 25 MG, WEEKLY
     Route: 042
     Dates: start: 20140222, end: 20140405
  4. SENNOSIDE                          /00571901/ [Concomitant]
     Active Substance: SENNOSIDES A AND B
     Indication: PROPHYLAXIS
     Dosage: 24 MG, DAILY
     Route: 048
     Dates: start: 20140308, end: 20141216
  5. ARTZ [Concomitant]
     Active Substance: HYALURONATE SODIUM
     Indication: OSTEOARTHRITIS
     Dosage: 25 MG, WEEKLY
     Route: 042
     Dates: start: 20140228, end: 20140428
  6. BTDS 5 MG [Suspect]
     Active Substance: BUPRENORPHINE
     Indication: ANALGESIC THERAPY
     Dosage: 5 MCG, Q1H
     Route: 062
     Dates: start: 20140730, end: 20141208
  7. MOHRUS [Concomitant]
     Active Substance: KETOPROFEN
     Indication: ARTHRITIS
     Route: 061
     Dates: start: 20131116
  8. BTDS 5 MG [Suspect]
     Active Substance: BUPRENORPHINE
     Dosage: 5 MCG, Q1H
     Route: 062
     Dates: start: 20140308, end: 20140414

REACTIONS (4)
  - Contusion [Recovered/Resolved]
  - Weight decreased [Unknown]
  - Joint dislocation [Recovered/Resolved]
  - Cerebral infarction [Unknown]

NARRATIVE: CASE EVENT DATE: 20140405
